FAERS Safety Report 17314320 (Version 1)
Quarter: 2020Q1

REPORT INFORMATION
  Report Type: Spontaneous
  Country: US (occurrence: US)
  Receive Date: 20200123
  Receipt Date: 20200123
  Transmission Date: 20200409
  Serious: No
  Sender: FDA-Public Use
  Company Number: None

PATIENT
  Sex: Male
  Weight: 115.2 kg

DRUGS (15)
  1. NITROSTAT [Concomitant]
     Active Substance: NITROGLYCERIN
  2. OMEGA 3 1200MG [Concomitant]
  3. TRAMADOL 50MG [Concomitant]
     Active Substance: TRAMADOL
  4. COLACE CLEAR [Concomitant]
     Active Substance: DOCUSATE SODIUM
  5. ELIQUIS [Concomitant]
     Active Substance: APIXABAN
  6. METOPROLOL 50MG [Concomitant]
     Active Substance: METOPROLOL
  7. ATORVASTATIN 80MG [Concomitant]
     Active Substance: ATORVASTATIN
  8. NIACIN 500MG [Concomitant]
  9. PROSCAR [Concomitant]
     Active Substance: FINASTERIDE
  10. CAPECITABINE. [Suspect]
     Active Substance: CAPECITABINE
     Indication: COLON CANCER
     Route: 048
     Dates: start: 20190816, end: 20200123
  11. KCL ER 10MEQ [Concomitant]
  12. CENTRUM SILVER 50+ MEN [Concomitant]
  13. SENNA 8.6MG [Concomitant]
  14. ACETAMINOPHEN EXTRA STRENGTH 500MG [Concomitant]
  15. LASIX 40MG [Concomitant]

REACTIONS (1)
  - Palmar-plantar erythrodysaesthesia syndrome [None]
